FAERS Safety Report 4694009-0 (Version None)
Quarter: 2005Q2

REPORT INFORMATION
  Report Type: 
  Country: None (occurrence: None)
  Receive Date: 20050616
  Receipt Date: 20050512
  Transmission Date: 20051028
  Serious: Yes (Other)
  Sender: FDA-Public Use
  Company Number: PAR_0070_2005

PATIENT
  Sex: Male

DRUGS (1)
  1. FLUOXETINE [Suspect]
     Dosage: DF PO
     Route: 048

REACTIONS (2)
  - DYSTONIA [None]
  - MOVEMENT DISORDER [None]
